FAERS Safety Report 7997550-8 (Version None)
Quarter: 2011Q4

REPORT INFORMATION
  Report Type: 
  Country: None (occurrence: None)
  Receive Date: 20111221
  Receipt Date: 20111218
  Transmission Date: 20120403
  Serious: Yes (Other)
  Sender: FDA-Public Use
  Company Number: US-PFIZER INC-2011307443

PATIENT
  Sex: Male
  Weight: 113 kg

DRUGS (2)
  1. ESTRING [Suspect]
     Dosage: UNK
     Route: 050
     Dates: start: 20111211
  2. TAMSULOSIN HYDROCHLORIDE [Concomitant]
     Indication: DIABETES MELLITUS
     Dosage: UNK

REACTIONS (5)
  - PENILE INFECTION [None]
  - GENITAL RASH [None]
  - PENILE EXFOLIATION [None]
  - BURNING SENSATION [None]
  - PENILE ERYTHEMA [None]
